FAERS Safety Report 19805586 (Version 2)
Quarter: 2021Q3

REPORT INFORMATION
  Report Type: Report from Study
  Country: AU (occurrence: AU)
  Receive Date: 20210909
  Receipt Date: 20210930
  Transmission Date: 20211014
  Serious: Yes (Hospitalization)
  Sender: FDA-Public Use
  Company Number: AU-AMGEN-AUSCT2019126051

PATIENT
  Age: 42 Year
  Sex: Male
  Weight: 69.5 kg

DRUGS (21)
  1. FENTANYL. [Concomitant]
     Active Substance: FENTANYL
     Indication: TUMOUR PAIN
  2. TARGIN [Concomitant]
     Active Substance: NALOXONE HYDROCHLORIDE\OXYCODONE HYDROCHLORIDE
     Dosage: 1 UNK
     Route: 048
     Dates: start: 20190704, end: 20190708
  3. CALCIUM RESONIUM [Concomitant]
     Dosage: 15 GRAM
     Route: 048
     Dates: start: 20190708, end: 20190708
  4. FLUCONAZOLE. [Concomitant]
     Active Substance: FLUCONAZOLE
     Dosage: 200?400 MILLIGRAM
     Route: 048
     Dates: start: 20170825, end: 20190808
  5. CALCIUM GLUCONATE. [Concomitant]
     Active Substance: CALCIUM GLUCONATE
     Dosage: 2.2 UNK
     Route: 042
     Dates: start: 20190708, end: 20190708
  6. SALBUTAMOL [Concomitant]
     Active Substance: ALBUTEROL
     Dosage: 10 MILLIGRAM
     Route: 045
     Dates: start: 20190708, end: 20190708
  7. DIAZEPAM. [Concomitant]
     Active Substance: DIAZEPAM
     Dosage: 5 MILLIGRAM
     Route: 048
     Dates: start: 20190613, end: 20190812
  8. FENTANYL. [Concomitant]
     Active Substance: FENTANYL
     Indication: DIFFUSE LARGE B-CELL LYMPHOMA
     Dosage: 25?50 MICROGRAM
     Dates: start: 20190704, end: 20190806
  9. NYSTATIN. [Concomitant]
     Active Substance: NYSTATIN
     Dosage: 1?5 MILLILITER
     Route: 061
     Dates: start: 20190801, end: 20190805
  10. PEMBROLIZUMAB. [Suspect]
     Active Substance: PEMBROLIZUMAB
     Indication: DIFFUSE LARGE B-CELL LYMPHOMA
     Dosage: 200 MILLIGRAM
     Route: 042
     Dates: start: 20190722
  11. MAGNESIUM SULPHATE [MAGNESIUM SULFATE] [Concomitant]
     Active Substance: MAGNESIUM SULFATE
     Dosage: 10 UNK
     Route: 042
     Dates: start: 20190705, end: 20190707
  12. MOVICOL [Concomitant]
     Active Substance: POLYETHYLENE GLYCOL 3350\POTASSIUM CHLORIDE\SODIUM BICARBONATE\SODIUM CHLORIDE
     Dosage: 1 UNK
     Route: 048
     Dates: start: 20190709, end: 20190812
  13. MAGNESIUM [Concomitant]
     Active Substance: MAGNESIUM
     Dosage: 800 MILLIGRAM
     Route: 048
     Dates: start: 20190709, end: 20190805
  14. METOCLOPRAMIDE. [Concomitant]
     Active Substance: METOCLOPRAMIDE
     Dosage: 10 MILLIGRAM
     Route: 048
     Dates: start: 20190709, end: 20190812
  15. DEXAMETHASONE. [Concomitant]
     Active Substance: DEXAMETHASONE
     Indication: DIFFUSE LARGE B-CELL LYMPHOMA
     Dosage: 20 MILLIGRAM
     Route: 042
     Dates: start: 20190711
  16. DOCUSATE;SENNA [Concomitant]
     Active Substance: DOCUSATE\SENNOSIDES
     Dosage: 2 UNK
     Route: 048
     Dates: start: 20190709, end: 20190805
  17. HYDROMORPHONE [Concomitant]
     Active Substance: HYDROMORPHONE
     Dosage: 3 MILLIGRAM, 2.5 MILLIGRAM, LIQUID QID AND UNK, UNK AS NECESSARY
     Route: 048
     Dates: start: 20190708, end: 20190812
  18. BLINATUMOMAB [Suspect]
     Active Substance: BLINATUMOMAB
     Indication: DIFFUSE LARGE B-CELL LYMPHOMA
     Dosage: 56 MICROGRAM, QD
     Route: 042
     Dates: start: 20190704
  19. PREGABALIN. [Concomitant]
     Active Substance: PREGABALIN
     Dosage: 75 MILLIGRAM
     Route: 048
     Dates: start: 20170815, end: 20190812
  20. LORAZEPAM. [Concomitant]
     Active Substance: LORAZEPAM
     Dosage: 0.5 MILLIGRAM
     Route: 048
     Dates: start: 20190708, end: 20190709
  21. DICLOFENAC [Concomitant]
     Active Substance: DICLOFENAC
     Dosage: 1 UNK
     Route: 061
     Dates: start: 20190708, end: 20190812

REACTIONS (1)
  - Hypersomnia [Recovered/Resolved]

NARRATIVE: CASE EVENT DATE: 20190805
